FAERS Safety Report 11024976 (Version 1)
Quarter: 2015Q2

REPORT INFORMATION
  Report Type: Spontaneous
  Country: US (occurrence: None)
  Receive Date: 20150413
  Receipt Date: 20150413
  Transmission Date: 20150821
  Serious: Yes (Hospitalization, Disabling)
  Sender: FDA-Public Use
  Company Number: None

PATIENT
  Age: 54 Year
  Sex: Male
  Weight: 79.83 kg

DRUGS (2)
  1. ETANERCEPT [Suspect]
     Active Substance: ETANERCEPT
     Indication: OFF LABEL USE
     Dosage: 50 MG BIW
     Route: 058
     Dates: start: 20141014, end: 20150206
  2. ACITRETIN. [Concomitant]
     Active Substance: ACITRETIN

REACTIONS (4)
  - Ejection fraction decreased [None]
  - Pulmonary arterial pressure increased [None]
  - Dilatation ventricular [None]
  - Cardiac failure congestive [None]

NARRATIVE: CASE EVENT DATE: 20150123
